FAERS Safety Report 10424708 (Version 1)
Quarter: 2014Q3

REPORT INFORMATION
  Report Type: Spontaneous
  Country: US (occurrence: US)
  Receive Date: 20140902
  Receipt Date: 20140902
  Transmission Date: 20150326
  Serious: Yes (Disabling)
  Sender: FDA-Public Use
  Company Number: US-FRI-1000070300

PATIENT
  Age: 34 Year
  Sex: Female
  Weight: 92 kg

DRUGS (4)
  1. SAPHRIS [Suspect]
     Active Substance: ASENAPINE MALEATE
     Indication: PSYCHOTIC DISORDER
  2. SAPHRIS [Suspect]
     Active Substance: ASENAPINE MALEATE
     Indication: MAJOR DEPRESSION
     Route: 048
     Dates: start: 20121012, end: 20130327
  3. SAPHRIS [Suspect]
     Active Substance: ASENAPINE MALEATE
     Indication: OBSESSIVE-COMPULSIVE PERSONALITY DISORDER
  4. HYDROXYZINE [Concomitant]
     Active Substance: HYDROXYZINE\HYDROXYZINE HYDROCHLORIDE

REACTIONS (3)
  - Coordination abnormal [Not Recovered/Not Resolved]
  - Mastication disorder [Not Recovered/Not Resolved]
  - Musculoskeletal stiffness [Not Recovered/Not Resolved]

NARRATIVE: CASE EVENT DATE: 20130327
